FAERS Safety Report 18051749 (Version 1)
Quarter: 2020Q3

REPORT INFORMATION
  Report Type: Spontaneous
  Country: FR (occurrence: GB)
  Receive Date: 20200722
  Receipt Date: 20200722
  Transmission Date: 20201103
  Serious: Yes (Other)
  Sender: FDA-Public Use
  Company Number: FR-SUN PHARMACEUTICAL INDUSTRIES LTD-2020RR-254109

PATIENT
  Age: 24 Year
  Sex: Male

DRUGS (2)
  1. KETOCONAZOLE. [Suspect]
     Active Substance: KETOCONAZOLE
     Indication: SEBORRHOEIC DERMATITIS
     Dosage: 2 APPLICATIONS PAR SEMAINE ()
     Route: 003
     Dates: start: 201910, end: 202006
  2. ISOTRETINOIN. [Suspect]
     Active Substance: ISOTRETINOIN
     Indication: SEBORRHOEIC DERMATITIS
     Dosage: CF COMMENTAIRES ()
     Route: 048
     Dates: start: 201909, end: 202002

REACTIONS (3)
  - Visual field defect [Not Recovered/Not Resolved]
  - Colour vision tests normal [Not Recovered/Not Resolved]
  - Central vision loss [Not Recovered/Not Resolved]

NARRATIVE: CASE EVENT DATE: 202002
